FAERS Safety Report 5941351-9 (Version None)
Quarter: 2008Q4

REPORT INFORMATION
  Report Type: 
  Country: None (occurrence: None)
  Receive Date: 20081105
  Receipt Date: 20081029
  Transmission Date: 20090506
  Serious: Yes (Disabling)
  Sender: FDA-Public Use
  Company Number: AU-WYE-G02465908

PATIENT
  Sex: Female

DRUGS (5)
  1. EFFEXOR XR [Suspect]
     Indication: DEPRESSION
     Dosage: 75 MG DAILY
     Dates: start: 20070901
  2. EFFEXOR XR [Suspect]
     Indication: ATTENTION DEFICIT/HYPERACTIVITY DISORDER
     Dosage: INCREASED OVER TIME TO 300 MG DAILY
     Dates: end: 20081001
  3. EFFEXOR XR [Suspect]
     Dosage: 150 MG DAILY
     Dates: start: 20081001, end: 20081001
  4. EFFEXOR XR [Suspect]
     Dosage: UNKNOWN
     Dates: start: 20081001
  5. RITALIN - SLOW RELEASE [Concomitant]
     Dosage: 30 MG

REACTIONS (16)
  - ACTIVITIES OF DAILY LIVING IMPAIRED [None]
  - BALANCE DISORDER [None]
  - CONCUSSION [None]
  - COORDINATION ABNORMAL [None]
  - DYSGEUSIA [None]
  - HYPOAESTHESIA [None]
  - HYPOKINESIA [None]
  - JOINT DISLOCATION [None]
  - MOVEMENT DISORDER [None]
  - MUSCLE RUPTURE [None]
  - MUSCULAR WEAKNESS [None]
  - PARAESTHESIA [None]
  - PERIPHERAL COLDNESS [None]
  - ROAD TRAFFIC ACCIDENT [None]
  - SOMATOFORM DISORDER [None]
  - STRESS [None]
